FAERS Safety Report 8862441 (Version 1)
Quarter: 2012Q4

REPORT INFORMATION
  Report Type: 
  Country: CN (occurrence: CN)
  Receive Date: 20121026
  Receipt Date: 20121026
  Transmission Date: 20130627
  Serious: Yes (Hospitalization, Other)
  Sender: FDA-Public Use
  Company Number: CN-ASTELLAS-2012JP010028

PATIENT
  Sex: Female
  Weight: 63 kg

DRUGS (9)
  1. PROGRAF [Suspect]
     Indication: RENAL TRANSPLANT
     Dosage: 1.5 mg, bid
     Route: 048
     Dates: start: 20070201
  2. PROGRAF [Suspect]
     Dosage: 1 mg, bid
     Route: 048
     Dates: start: 2012
  3. CELLCEPT                           /01275102/ [Concomitant]
     Indication: RENAL TRANSPLANT
     Dosage: 1250 mg, Unknown/D
     Route: 048
     Dates: start: 20070201
  4. CELLCEPT                           /01275102/ [Concomitant]
     Dosage: 500 mg, bid
     Route: 048
     Dates: start: 2011
  5. ROCALTROL [Concomitant]
     Indication: RENAL TRANSPLANT
     Dosage: 0.25 ug, UID/QD
     Route: 048
     Dates: start: 20070201
  6. METHYLPREDNISOLONE [Concomitant]
     Indication: RENAL TRANSPLANT
     Dosage: UNK
     Route: 048
     Dates: start: 20070201
  7. METHYLPREDNISOLONE [Concomitant]
     Dosage: 4 mg, UID/QD
     Route: 048
  8. BAILING CAPSULE [Concomitant]
     Indication: RENAL TRANSPLANT
     Dosage: UNK
     Route: 048
     Dates: start: 20070201
  9. BAILING CAPSULE [Concomitant]
     Dosage: 1.2 g, UID/QD
     Route: 048

REACTIONS (9)
  - Lung infection [Recovered/Resolved]
  - Blood creatinine increased [Recovered/Resolved]
  - Urinary tract infection [Recovered/Resolved]
  - Immunosuppressant drug level increased [Unknown]
  - Nasopharyngitis [Recovered/Resolved]
  - Ligament sprain [Recovering/Resolving]
  - Contusion [Recovering/Resolving]
  - Body height decreased [Unknown]
  - Kyphosis [Unknown]
